FAERS Safety Report 4882056-5 (Version None)
Quarter: 2006Q1

REPORT INFORMATION
  Report Type: 
  Country: None (occurrence: None)
  Receive Date: 20060117
  Receipt Date: 20050105
  Transmission Date: 20060701
  Serious: Yes (Hospitalization)
  Sender: FDA-Public Use
  Company Number: US-MERCK-0501USA00563

PATIENT
  Age: 55 Year
  Sex: Male
  Weight: 70 kg

DRUGS (3)
  1. VIOXX [Suspect]
     Indication: NECK PAIN
     Route: 048
     Dates: start: 19991014, end: 20040806
  2. ASPIRIN [Concomitant]
     Route: 065
  3. IBUPROFEN [Concomitant]
     Route: 065

REACTIONS (29)
  - ANGINA UNSTABLE [None]
  - ARRHYTHMIA [None]
  - ASPIRATION [None]
  - BRADYCARDIA [None]
  - CORONARY ARTERY DISEASE [None]
  - CORONARY ARTERY STENOSIS [None]
  - DEPRESSION [None]
  - DIARRHOEA [None]
  - DIZZINESS [None]
  - DRUG INTOLERANCE [None]
  - DUODENAL ULCER HAEMORRHAGE [None]
  - DUODENITIS [None]
  - DYSPHAGIA [None]
  - ERECTILE DYSFUNCTION [None]
  - FATIGUE [None]
  - GASTROINTESTINAL HAEMORRHAGE [None]
  - GASTROOESOPHAGEAL REFLUX DISEASE [None]
  - HEADACHE [None]
  - HYPERLIPIDAEMIA [None]
  - INGUINAL HERNIA [None]
  - MYALGIA [None]
  - MYOCARDIAL INFARCTION [None]
  - MYOCARDIAL ISCHAEMIA [None]
  - OESOPHAGITIS [None]
  - RASH [None]
  - SINUSITIS [None]
  - SYNCOPE [None]
  - THROMBOPHLEBITIS SUPERFICIAL [None]
  - VIRAL DIARRHOEA [None]
